FAERS Safety Report 20472549 (Version 1)
Quarter: 2022Q1

REPORT INFORMATION
  Report Type: Spontaneous
  Country: PK (occurrence: PK)
  Receive Date: 20220215
  Receipt Date: 20220215
  Transmission Date: 20220423
  Serious: Yes (Death)
  Sender: FDA-Public Use
  Company Number: PK-PFIZER INC-202200197108

PATIENT
  Age: 65 Year
  Sex: Female

DRUGS (11)
  1. ENBREL [Suspect]
     Active Substance: ETANERCEPT
     Indication: Product used for unknown indication
     Dosage: 50 MILLIGRAM, QWK
     Route: 058
     Dates: start: 20211228
  2. INH [Concomitant]
     Active Substance: ISONIAZID
     Dosage: 100 MILLIGRAM
  3. METHOTREXATE [Concomitant]
     Active Substance: METHOTREXATE
     Dosage: 2.5 MILLIGRAM
  4. FOLIC ACID [Concomitant]
     Active Substance: FOLIC ACID
     Dosage: 5 MILLIGRAM
  5. PROVAS N [Concomitant]
     Dosage: UNK
  6. CELBEXX [Concomitant]
     Dosage: 200 MILLIGRAM
  7. CALCIUM [Concomitant]
     Active Substance: CALCIUM
     Dosage: UNK
  8. ESSO [Concomitant]
     Dosage: 20 MILLIGRAM
  9. VITRUM [MINERALS NOS;VITAMINS NOS] [Concomitant]
     Dosage: UNK
  10. DELTACORTRIL [Concomitant]
     Active Substance: PREDNISOLONE
     Dosage: UNK
  11. LEFORA [Concomitant]
     Dosage: 20 MILLIGRAM

REACTIONS (1)
  - Death [Fatal]
